FAERS Safety Report 8213116-9 (Version None)
Quarter: 2012Q1

REPORT INFORMATION
  Report Type: 
  Country: None (occurrence: None)
  Receive Date: 20120228
  Receipt Date: 20110712
  Transmission Date: 20120608
  Serious: Yes (Hospitalization)
  Sender: FDA-Public Use
  Company Number: RB-30332-2011

PATIENT
  Sex: Male

DRUGS (1)
  1. SUBOXONE [Suspect]
     Indication: DRUG DEPENDENCE
     Dosage: ( SUBLINGUAL)
     Route: 060

REACTIONS (2)
  - ALCOHOL WITHDRAWAL SYNDROME [None]
  - HYPOTENSION [None]
